FAERS Safety Report 15207565 (Version 1)
Quarter: 2018Q3

REPORT INFORMATION
  Report Type: Spontaneous
  Country: US (occurrence: US)
  Receive Date: 20180727
  Receipt Date: 20180727
  Transmission Date: 20181010
  Serious: No
  Sender: FDA-Public Use
  Company Number: US-009507513-1807USA007599

PATIENT
  Age: 21 Year
  Sex: Female

DRUGS (3)
  1. NEXPLANON [Suspect]
     Active Substance: ETONOGESTREL
     Dosage: 68 MG, UNK
     Route: 059
     Dates: start: 201807
  2. NEXPLANON [Suspect]
     Active Substance: ETONOGESTREL
     Dosage: 68 MG, UNK
     Route: 059
     Dates: start: 20180709
  3. NEXPLANON [Suspect]
     Active Substance: ETONOGESTREL
     Dosage: AN IMPLANT FOR 3 YEARS
     Route: 059
     Dates: start: 201507, end: 20180709

REACTIONS (6)
  - Device deployment issue [Not Recovered/Not Resolved]
  - Device breakage [Unknown]
  - Complication associated with device [Not Recovered/Not Resolved]
  - Device difficult to use [Not Recovered/Not Resolved]
  - Overdose [Unknown]
  - Complication of device removal [Not Recovered/Not Resolved]

NARRATIVE: CASE EVENT DATE: 201807
